FAERS Safety Report 7927180-5 (Version None)
Quarter: 2011Q4

REPORT INFORMATION
  Report Type: 
  Country: None (occurrence: None)
  Receive Date: 20111116
  Receipt Date: 20111104
  Transmission Date: 20120403
  Serious: Yes (Disabling, Other)
  Sender: FDA-Public Use
  Company Number: FK201102233

PATIENT
  Age: 23 Year
  Sex: Female
  Weight: 67.5 kg

DRUGS (11)
  1. ERTHROMYCIN ETHYLSUCCINATE (ERYTHROMYCIN ETHYLSUCCINATE) (ERYTHROMYCIN [Concomitant]
  2. LORAZEPAM [Concomitant]
  3. CHLORDIAZEPOXIDE (CHLORDIAZEPOXIDE) (CHLORDIAZEPOXIDE) [Concomitant]
  4. CYCLIZINE (CYCLIZINE) (CYCLIZINE) [Concomitant]
  5. IMPLANON [Suspect]
     Indication: PRODUCT USED FOR UNKNOWN INDICATION
  6. ONDANSETRON [Suspect]
     Indication: PRODUCT USED FOR UNKNOWN INDICATION
  7. METOCLOPRAMIDE (METOCLOPRAMIDE) (METOCLOPRAMIDE) [Concomitant]
  8. PROCHLORPERAZINE (PROCHLORPERAZINE) (PROCHLORPERAZINE) [Concomitant]
  9. CEFALEXIN (CEFALEXIN) (CEFALEXIN) [Concomitant]
  10. CLOMIPRAMINE (CLOMIPRAMINE) (CLOMIPRAMINE) [Concomitant]
  11. GAVISCON ADVANCE (GAVISCON ADVANCE) (GAVISCON ADVANCE) [Concomitant]

REACTIONS (1)
  - MORBID THOUGHTS [None]
